FAERS Safety Report 8269142-7 (Version None)
Quarter: 2012Q2

REPORT INFORMATION
  Report Type: 
  Country: None (occurrence: None)
  Receive Date: 20120409
  Receipt Date: 20120406
  Transmission Date: 20120825
  Serious: Yes (Other)
  Sender: FDA-Public Use
  Company Number: TN-ABBOTT-12P-160-0915899-00

PATIENT
  Sex: Male
  Weight: 80 kg

DRUGS (2)
  1. METFORMIN HCL [Concomitant]
     Indication: DIABETES MELLITUS
     Dosage: 2250MG DAILY, 850MG, 3 IN 1 DAY
     Dates: start: 19920101
  2. FENOFIBRATE [Suspect]
     Indication: HYPERTRIGLYCERIDAEMIA
     Route: 048
     Dates: start: 20090101, end: 20120101

REACTIONS (4)
  - BLOOD CREATININE INCREASED [None]
  - HYPERTENSION [None]
  - DIABETES MELLITUS [None]
  - DIABETES MELLITUS INADEQUATE CONTROL [None]
